FAERS Safety Report 6985494-X (Version None)
Quarter: 2010Q3

REPORT INFORMATION
  Report Type: 
  Country: None (occurrence: None)
  Receive Date: 20100915
  Receipt Date: 20100909
  Transmission Date: 20110219
  Serious: Yes (Life-Threatening, Hospitalization)
  Sender: FDA-Public Use
  Company Number: B0673843A

PATIENT
  Sex: Female

DRUGS (9)
  1. AUGMENTIN '125' [Suspect]
     Indication: PRODUCT USED FOR UNKNOWN INDICATION
     Dosage: 1G THREE TIMES PER DAY
     Route: 042
     Dates: start: 20100721, end: 20100729
  2. CEFOTAXIM [Suspect]
     Indication: PRODUCT USED FOR UNKNOWN INDICATION
     Dosage: 1G THREE TIMES PER DAY
     Route: 042
     Dates: start: 20100802, end: 20100809
  3. PERFALGAN [Concomitant]
     Route: 065
  4. DEBRIDAT [Concomitant]
     Route: 065
  5. LEXOMIL [Concomitant]
     Route: 065
  6. VOGALENE [Concomitant]
     Route: 065
  7. TARDYFERON [Concomitant]
     Route: 065
  8. DEPAKENE [Concomitant]
     Route: 065
  9. SOLUPRED [Concomitant]
     Route: 065

REACTIONS (3)
  - CROSS SENSITIVITY REACTION [None]
  - SUBDURAL HAEMATOMA [None]
  - THROMBOCYTOPENIA [None]
